FAERS Safety Report 8336663-8 (Version None)
Quarter: 2012Q2

REPORT INFORMATION
  Report Type: 
  Country: None (occurrence: None)
  Receive Date: 20120504
  Receipt Date: 20100602
  Transmission Date: 20120825
  Serious: No
  Sender: FDA-Public Use
  Company Number: US-TEVA-2010003065

PATIENT
  Sex: Female

DRUGS (6)
  1. NUVIGIL [Suspect]
     Indication: HYPERSOMNIA
     Dosage: 150 MILLIGRAM;
     Route: 048
     Dates: start: 20100501
  2. PRILOSEC [Concomitant]
     Indication: GASTROOESOPHAGEAL REFLUX DISEASE
  3. PREDNISONE [Concomitant]
     Indication: RHEUMATOID ARTHRITIS
  4. METHOTREXATE [Concomitant]
     Indication: RHEUMATOID ARTHRITIS
  5. ARAVA [Concomitant]
     Indication: RHEUMATOID ARTHRITIS
  6. SALAGEN [Concomitant]
     Indication: SJOGREN'S SYNDROME

REACTIONS (3)
  - WHITE BLOOD CELL COUNT DECREASED [None]
  - ARTHRALGIA [None]
  - JOINT SWELLING [None]
